FAERS Safety Report 7793179-5 (Version None)
Quarter: 2011Q3

REPORT INFORMATION
  Report Type: 
  Country: None (occurrence: None)
  Receive Date: 20110930
  Receipt Date: 20110930
  Transmission Date: 20111222
  Serious: Yes (Other)
  Sender: FDA-Public Use
  Company Number: None

PATIENT
  Sex: Female
  Weight: 58.9676 kg

DRUGS (2)
  1. METFORMIN HCL [Suspect]
     Indication: MENSTRUATION IRREGULAR
     Dosage: 500 MG X4/DAY 4 TABLATES/DAY ORAL
     Route: 048
     Dates: start: 20110401, end: 20110815
  2. METFORMIN HCL [Suspect]
     Indication: OVARIAN CYST
     Dosage: 500 MG X4/DAY 4 TABLATES/DAY ORAL
     Route: 048
     Dates: start: 20110401, end: 20110815

REACTIONS (7)
  - ERUCTATION [None]
  - SKIN DISCOLOURATION [None]
  - MENORRHAGIA [None]
  - BLOOD IRON DECREASED [None]
  - ABDOMINAL DISTENSION [None]
  - VOMITING [None]
  - FLATULENCE [None]
